FAERS Safety Report 7511649-1 (Version None)
Quarter: 2011Q2

REPORT INFORMATION
  Report Type: 
  Country: None (occurrence: None)
  Receive Date: 20110531
  Receipt Date: 20110524
  Transmission Date: 20111010
  Serious: Yes (Other)
  Sender: FDA-Public Use
  Company Number: US-PFIZER INC-2011055399

PATIENT
  Sex: Male

DRUGS (9)
  1. ALLOPURINOL [Concomitant]
  2. POTASSIUM CHLORIDE [Concomitant]
  3. SUTENT [Suspect]
     Dosage: 37.5 MG, 1X/DAY, X 28 DAYS EVERY 42 DAYS
     Dates: start: 20110414
  4. ISOSORBIDE [Concomitant]
  5. ZOCOR [Concomitant]
  6. METOPROLOL [Concomitant]
  7. LORAZEPAM [Concomitant]
  8. SUTENT [Suspect]
     Indication: METASTATIC RENAL CELL CARCINOMA
     Dosage: 50 MG, 1X/DAY, X 28 DAYS EVERY 42 DAYS
     Route: 048
     Dates: start: 20110304
  9. ASPIRIN [Concomitant]

REACTIONS (2)
  - HYPERTENSION [None]
  - THROMBOSIS [None]
